FAERS Safety Report 25534754 (Version 1)
Quarter: 2025Q3

REPORT INFORMATION
  Report Type: Spontaneous
  Country: US (occurrence: None)
  Receive Date: 20250709
  Receipt Date: 20250709
  Transmission Date: 20251020
  Serious: Yes (Life-Threatening, Hospitalization)
  Sender: FDA-CTU
  Company Number: None

PATIENT
  Age: 56 Year
  Sex: Female
  Weight: 128.25 kg

DRUGS (13)
  1. JARDIANCE [Suspect]
     Active Substance: EMPAGLIFLOZIN
     Indication: Diabetes mellitus
     Dates: end: 20250128
  2. ZYRTEC [Concomitant]
     Active Substance: CETIRIZINE HYDROCHLORIDE
  3. LOSARTAN [Concomitant]
     Active Substance: LOSARTAN
  4. JANUVIA [Concomitant]
     Active Substance: SITAGLIPTIN PHOSPHATE
  5. nateglinde [Concomitant]
  6. LEXAPRO [Concomitant]
     Active Substance: ESCITALOPRAM OXALATE
  7. NORVASC [Concomitant]
     Active Substance: AMLODIPINE BESYLATE
  8. PRAVASTATIN [Concomitant]
     Active Substance: PRAVASTATIN
  9. MONTELUKAST [Concomitant]
     Active Substance: MONTELUKAST
  10. biosopril [Concomitant]
  11. albuteral inhaler [Concomitant]
  12. breathing machine [Concomitant]
  13. multi vitamin women over 50 [Concomitant]

REACTIONS (4)
  - Malaise [None]
  - Toothache [None]
  - Necrotising fasciitis [None]
  - Impaired healing [None]

NARRATIVE: CASE EVENT DATE: 20250121
